FAERS Safety Report 8161290-5 (Version None)
Quarter: 2012Q1

REPORT INFORMATION
  Report Type: 
  Country: None (occurrence: None)
  Receive Date: 20120224
  Receipt Date: 20120214
  Transmission Date: 20120608
  Serious: Yes (Other)
  Sender: FDA-Public Use
  Company Number: US-JNJFOC-20120207704

PATIENT
  Sex: Female

DRUGS (2)
  1. REMICADE [Suspect]
     Dosage: SECOND INFUSION
     Route: 042
     Dates: start: 20120202, end: 20120202
  2. REMICADE [Suspect]
     Indication: CROHN'S DISEASE
     Route: 042
     Dates: start: 20120101

REACTIONS (1)
  - RHEUMATOID ARTHRITIS [None]
